FAERS Safety Report 9229159 (Version 3)
Quarter: 2014Q2

REPORT INFORMATION
  Report Type: Spontaneous
  Country: IT (occurrence: IT)
  Receive Date: 20130412
  Receipt Date: 20140401
  Transmission Date: 20141212
  Serious: Yes (Hospitalization)
  Sender: FDA-Public Use
  Company Number: IT-009507513-1304ITA003327

PATIENT
  Age: 53 Year
  Sex: Female

DRUGS (5)
  1. TRILAFON [Suspect]
     Indication: AFFECTIVE DISORDER
     Dosage: 160 MG TOTAL
     Route: 048
     Dates: start: 20121213, end: 20121213
  2. TRILAFON [Suspect]
     Dosage: 0.5 DF, BEFORE GOING TO SLEEP
     Route: 048
  3. ZYPREXA [Suspect]
     Indication: INSOMNIA
     Dosage: 50 MG, ONCE
     Route: 048
     Dates: start: 20121213, end: 20121213
  4. ZYPREXA [Suspect]
     Dosage: 5 MG, AS NEEDED
     Route: 048
  5. CIPRALEX [Concomitant]
     Dosage: 10 MG, AT 08:00 AM
     Route: 048

REACTIONS (1)
  - Sopor [Recovering/Resolving]
